FAERS Safety Report 7410960-2 (Version None)
Quarter: 2011Q2

REPORT INFORMATION
  Report Type: 
  Country: None (occurrence: None)
  Receive Date: 20110413
  Receipt Date: 20110330
  Transmission Date: 20111010
  Serious: Yes (Hospitalization)
  Sender: FDA-Public Use
  Company Number: DE-JNJFOC-20110400713

PATIENT
  Sex: Male
  Weight: 85 kg

DRUGS (8)
  1. PALEXIA RETARD [Suspect]
     Indication: PRODUCT USED FOR UNKNOWN INDICATION
     Dosage: 1-0-1
     Route: 048
  2. TILIDIN [Concomitant]
     Dosage: 1-0-1
     Route: 065
  3. CITALOPRAM [Concomitant]
     Dosage: 1-0-0
     Route: 065
  4. SIMVASTATIN [Concomitant]
     Dosage: 0-0-1
     Route: 065
  5. MARCUMAR [Concomitant]
     Indication: ATRIAL FIBRILLATION
     Route: 065
  6. MIRTAZAPIN [Concomitant]
     Dosage: 0-0-0-1
     Route: 065
  7. PANTOPRAZOLE SODIUM [Concomitant]
     Indication: PRODUCT USED FOR UNKNOWN INDICATION
     Dosage: 1-0-0
     Route: 065
  8. LORAZEPAM [Concomitant]
     Route: 065

REACTIONS (3)
  - SENSATION OF HEAVINESS [None]
  - OEDEMA PERIPHERAL [None]
  - PAIN IN EXTREMITY [None]
